FAERS Safety Report 10606219 (Version 1)
Quarter: 2014Q4

REPORT INFORMATION
  Report Type: Spontaneous
  Country: DE (occurrence: None)
  Receive Date: 20141121
  Receipt Date: 20141121
  Transmission Date: 20150529
  Serious: Yes (Other)
  Sender: FDA-Public Use
  Company Number: VAL_03603_2014

PATIENT
  Age: 74 Year
  Sex: Male

DRUGS (4)
  1. METOPROLOL [Suspect]
     Active Substance: METOPROLOL
     Indication: PRODUCT USED FOR UNKNOWN INDICATION
     Route: 048
  2. RISPERDAL [Suspect]
     Active Substance: RISPERIDONE
     Indication: PRODUCT USED FOR UNKNOWN INDICATION
     Route: 048
     Dates: start: 20140409, end: 20140409
  3. ALLOPURINOL. [Concomitant]
     Active Substance: ALLOPURINOL
  4. RAMIPRIL. [Concomitant]
     Active Substance: RAMIPRIL

REACTIONS (9)
  - Immobile [None]
  - Hypotonia [None]
  - Parkinsonism [None]
  - Salivary hypersecretion [None]
  - Speech disorder [None]
  - Oromandibular dystonia [None]
  - Masked facies [None]
  - Chills [None]
  - Dysphagia [None]

NARRATIVE: CASE EVENT DATE: 20140411
